FAERS Safety Report 4489854-0 (Version None)
Quarter: 2004Q4

REPORT INFORMATION
  Report Type: 
  Country: None (occurrence: None)
  Receive Date: 20041026
  Receipt Date: 20041008
  Transmission Date: 20050328
  Serious: Yes (Hospitalization, Disabling)
  Sender: FDA-Public Use
  Company Number: F01200401190

PATIENT
  Age: 67 Year
  Sex: Male

DRUGS (13)
  1. (OXALIPLATIN) - SOLUTION - 85 MG/M2 [Suspect]
     Indication: COLORECTAL CANCER STAGE IV
     Dosage: 85 MG/M2 Q2W, INTRAVENOUS NOS
     Route: 042
     Dates: start: 20040429, end: 20040429
  2. FLUOROURACIL [Suspect]
     Dosage: 400 MG/M2 BOLUS THEN 2400 MG/M2 AS 46 HOURS INFUSION Q2W
     Route: 042
     Dates: start: 20040429, end: 20040429
  3. (LEUCOVORIN) - SOLUTION - 350 MG [Suspect]
     Dosage: 350 MG Q2W
     Route: 042
     Dates: start: 20040429, end: 20040429
  4. AVASTIN [Suspect]
     Dosage: 5 MG/KG OVER 30-90 MINUTES IV INFUSION ON DAY 1? Q2W, INTRAVENOUS NOS
     Route: 042
     Dates: start: 20040429, end: 20040429
  5. PAXIL [Concomitant]
  6. ASPIRIN [Concomitant]
  7. KEFLEX [Concomitant]
  8. MULTI-VITAMINS [Concomitant]
  9. LOMOTIL [Concomitant]
  10. IMODIUM [Concomitant]
  11. COMPAZINE [Concomitant]
  12. ZOFRAN [Concomitant]
  13. ALUMINUM HYDROXIDE AND MAGNESIUM TRISILICATE [Concomitant]

REACTIONS (15)
  - DEHYDRATION [None]
  - DYSPHAGIA [None]
  - HYPONATRAEMIA [None]
  - IMPAIRED HEALING [None]
  - LEUKOPENIA [None]
  - MALNUTRITION [None]
  - METASTASES TO LIVER [None]
  - NEUTROPENIA [None]
  - OESOPHAGEAL CANDIDIASIS [None]
  - PERITONITIS [None]
  - POST PROCEDURAL COMPLICATION [None]
  - SPIGELIAN HERNIA [None]
  - SURGICAL PROCEDURE REPEATED [None]
  - WOUND DEHISCENCE [None]
  - WOUND INFECTION [None]
